FAERS Safety Report 4862680-6 (Version None)
Quarter: 2005Q4

REPORT INFORMATION
  Report Type: 
  Country: None (occurrence: None)
  Receive Date: 20051221
  Receipt Date: 20050419
  Transmission Date: 20060501
  Serious: Yes (Hospitalization, Disabling, Other)
  Sender: FDA-Public Use
  Company Number: US-MERCK-0504USA03702

PATIENT
  Age: 44 Year
  Sex: Female
  Weight: 97 kg

DRUGS (1)
  1. VIOXX [Suspect]
     Indication: ROTATOR CUFF SYNDROME
     Route: 048
     Dates: start: 19991101, end: 20010901

REACTIONS (20)
  - ACUTE SINUSITIS [None]
  - ANXIETY [None]
  - ATRIAL SEPTAL DEFECT [None]
  - BLOOD PRESSURE [None]
  - CEREBROVASCULAR ACCIDENT [None]
  - CHEST DISCOMFORT [None]
  - CHEST PAIN [None]
  - DEEP VEIN THROMBOSIS [None]
  - DIZZINESS [None]
  - DYSPEPSIA [None]
  - DYSPNOEA [None]
  - FATIGUE [None]
  - HYPERTENSION [None]
  - INAPPROPRIATE AFFECT [None]
  - INJURY [None]
  - NARCOLEPSY [None]
  - PLANTAR FASCIITIS [None]
  - ROAD TRAFFIC ACCIDENT [None]
  - SLEEP APNOEA SYNDROME [None]
  - THROMBOSIS [None]
